FAERS Safety Report 24672013 (Version 1)
Quarter: 2024Q4

REPORT INFORMATION
  Report Type: Spontaneous
  Country: SI (occurrence: SI)
  Receive Date: 20241127
  Receipt Date: 20241127
  Transmission Date: 20250115
  Serious: Yes (Other)
  Sender: AMGEN
  Company Number: SI-AMGEN-SVNSP2021220209

PATIENT
  Age: 47 Year
  Sex: Female

DRUGS (2)
  1. BEVACIZUMAB [Suspect]
     Active Substance: BEVACIZUMAB
     Indication: Product used for unknown indication
     Dosage: UNK
     Route: 065
  2. CAPECITABINE [Suspect]
     Active Substance: CAPECITABINE
     Indication: Product used for unknown indication
     Dosage: UNK
     Route: 048

REACTIONS (10)
  - Chest injury [Unknown]
  - Myocardial ischaemia [Unknown]
  - Akinesia [Unknown]
  - Left ventricular enlargement [Unknown]
  - Renal impairment [Unknown]
  - Mitral valve incompetence [Unknown]
  - Pain in extremity [Unknown]
  - Haemorrhoids [Unknown]
  - Pain [Unknown]
  - Dry skin [Unknown]
